FAERS Safety Report 11365254 (Version 1)
Quarter: 2015Q3

REPORT INFORMATION
  Report Type: Report from Study
  Country: US (occurrence: US)
  Receive Date: 20150811
  Receipt Date: 20150811
  Transmission Date: 20151125
  Serious: No
  Sender: FDA-Public Use
  Company Number: GXBR2015US000864

PATIENT
  Sex: Male

DRUGS (2)
  1. OMNITROPE [Suspect]
     Active Substance: SOMATROPIN
     Dosage: 1 MG, SIX DAYS A WEEK
     Route: 065
  2. OMNITROPE [Suspect]
     Active Substance: SOMATROPIN
     Indication: BODY HEIGHT BELOW NORMAL
     Dosage: 1.1 MG, SIX DAYS A WEEK
     Route: 065
     Dates: start: 201402

REACTIONS (2)
  - Drug administered in wrong device [Recovered/Resolved]
  - Incorrect dose administered by device [Recovered/Resolved]
